FAERS Safety Report 10979407 (Version 4)
Quarter: 2015Q3

REPORT INFORMATION
  Report Type: Report from Study
  Country: US (occurrence: US)
  Receive Date: 20150402
  Receipt Date: 20150909
  Transmission Date: 20151125
  Serious: Yes (Hospitalization)
  Sender: FDA-Public Use
  Company Number: US-BRISTOL-MYERS SQUIBB COMPANY-19721596

PATIENT
  Age: 45 Year
  Sex: Female
  Weight: 136.8 kg

DRUGS (12)
  1. SENNAPLUS [Concomitant]
     Indication: PREMEDICATION
     Dosage: 1DF=8.6-50MG
     Route: 065
     Dates: start: 20130916
  2. NIVOLUMAB [Suspect]
     Active Substance: NIVOLUMAB
     Indication: METASTATIC MALIGNANT MELANOMA
     Dosage: UNK MG/KG, UNK
     Route: 042
     Dates: start: 20130924
  3. MORPHINE SULFATE. [Concomitant]
     Active Substance: MORPHINE SULFATE
     Indication: PRODUCT USED FOR UNKNOWN INDICATION
     Route: 065
  4. PREDNISONE. [Concomitant]
     Active Substance: PREDNISONE
     Indication: PRODUCT USED FOR UNKNOWN INDICATION
     Dosage: 60MG ON 19OCT-25OCT13  DOSE INCREASED TO 100MG ON 26OCT13
     Route: 048
     Dates: start: 20131019
  5. OXYCODONE [Concomitant]
     Active Substance: OXYCODONE
     Indication: PREMEDICATION
     Dosage: UNK
     Route: 065
     Dates: start: 20130821
  6. IBUPROFEN. [Concomitant]
     Active Substance: IBUPROFEN
     Indication: PRODUCT USED FOR UNKNOWN INDICATION
     Route: 065
  7. FLUTICASONE [Concomitant]
     Active Substance: FLUTICASONE\FLUTICASONE PROPIONATE
     Indication: PRODUCT USED FOR UNKNOWN INDICATION
     Dosage: 110 ?G, UNK
     Route: 055
     Dates: start: 1997
  8. HYZAAR [Concomitant]
     Active Substance: HYDROCHLOROTHIAZIDE\LOSARTAN POTASSIUM
     Indication: PREMEDICATION
     Dosage: 1DF=50-12.5MG
     Route: 065
     Dates: start: 2011
  9. IPILIMUMAB [Suspect]
     Active Substance: IPILIMUMAB
     Indication: METASTATIC MALIGNANT MELANOMA
     Dosage: UNK
     Route: 042
     Dates: start: 20130924
  10. ALBUTEROL INHALER [Concomitant]
     Active Substance: ALBUTEROL
     Indication: PREMEDICATION
     Dosage: 90 ?G, UNK
     Route: 065
     Dates: start: 1997
  11. GLUCOPHAGE [Concomitant]
     Active Substance: METFORMIN HYDROCHLORIDE
     Indication: PREMEDICATION
     Dosage: UNK
     Route: 065
     Dates: start: 2012
  12. MORPHINE [Concomitant]
     Active Substance: MORPHINE
     Indication: PREMEDICATION
     Dosage: UNK
     Route: 065
     Dates: start: 20130916

REACTIONS (2)
  - Pyrexia [Recovered/Resolved]
  - Headache [Recovered/Resolved]

NARRATIVE: CASE EVENT DATE: 20131028
